FAERS Safety Report 8596383-1 (Version None)
Quarter: 2012Q3

REPORT INFORMATION
  Report Type: 
  Country: None (occurrence: None)
  Receive Date: 20120815
  Receipt Date: 20120809
  Transmission Date: 20120928
  Serious: Yes (Other)
  Sender: FDA-Public Use
  Company Number: US-PFIZER INC-2012194612

PATIENT
  Age: 64 Year
  Sex: Female
  Weight: 81.633 kg

DRUGS (6)
  1. TOVIAZ [Suspect]
     Indication: POLLAKIURIA
     Dosage: 4 MG, DAILY
     Dates: start: 20120801
  2. TOVIAZ [Suspect]
     Indication: MICTURITION URGENCY
  3. LISINOPRIL [Concomitant]
     Indication: HYPERTENSION
     Dosage: 40 MG, 2X/DAY
     Route: 048
  4. VESICARE [Suspect]
     Indication: POLLAKIURIA
     Dosage: UNK, (ON AND OFF )
  5. VESICARE [Suspect]
     Indication: MICTURITION URGENCY
  6. AMLODIPINE BESILATE [Concomitant]
     Indication: HYPERTENSION
     Dosage: 5 MG, DAILY

REACTIONS (2)
  - MICTURITION URGENCY [None]
  - RENAL DISORDER [None]
